FAERS Safety Report 5314137-6 (Version None)
Quarter: 2007Q2

REPORT INFORMATION
  Report Type: 
  Country: None (occurrence: None)
  Receive Date: 20070425
  Receipt Date: 20070412
  Transmission Date: 20071010
  Serious: Yes (Other)
  Sender: FDA-Public Use
  Company Number: 100#03#2007-01165

PATIENT
  Age: 74 Year
  Sex: Male

DRUGS (2)
  1. SERTRALINE [Suspect]
     Indication: ANXIETY
     Dosage: 50 MG UNKNOWN
     Dates: start: 19990701
  2. SERTRALINE [Suspect]
     Indication: DEPRESSION
     Dosage: 50 MG UNKNOWN
     Dates: start: 19990701

REACTIONS (5)
  - AGITATION [None]
  - FEELING ABNORMAL [None]
  - HOMICIDE [None]
  - INCORRECT DOSE ADMINISTERED [None]
  - SUICIDAL IDEATION [None]
